FAERS Safety Report 4664091-5 (Version None)
Quarter: 2005Q2

REPORT INFORMATION
  Report Type: 
  Country: None (occurrence: None)
  Receive Date: 20050516
  Receipt Date: 20050502
  Transmission Date: 20051028
  Serious: Yes (Hospitalization, Other)
  Sender: FDA-Public Use
  Company Number: HQWYE555305MAY05

PATIENT
  Age: 80 Year
  Sex: Female
  Weight: 77.18 kg

DRUGS (11)
  1. EFFEXOR XR [Suspect]
     Indication: DEPRESSION
     Dosage: 75 MG 1X PER 1 DAY, ORAL
     Route: 048
     Dates: start: 19980101
  2. PLAVIX [Suspect]
     Indication: THROMBOSIS
     Dosage: 75 MG 1X PER 1 DAY
     Dates: start: 20041001
  3. ALLOPURINOL [Concomitant]
  4. CATAPRES [Concomitant]
  5. LOPRESSOR [Concomitant]
  6. NEURONTIN [Concomitant]
  7. POTASSIUM ACETATE [Concomitant]
  8. SYNTHROID [Concomitant]
  9. MENEST [Concomitant]
  10. DIOVAN [Concomitant]
  11. ACCUPRIL [Concomitant]

REACTIONS (8)
  - CARDIAC DISORDER [None]
  - CARDIOVASCULAR DISORDER [None]
  - CONTUSION [None]
  - DEHYDRATION [None]
  - DRUG WITHDRAWAL SYNDROME [None]
  - NAUSEA [None]
  - NERVOUSNESS [None]
  - THROMBOSIS [None]
